FAERS Safety Report 16210161 (Version 2)
Quarter: 2019Q2

REPORT INFORMATION
  Report Type: Spontaneous
  Country: CN (occurrence: CN)
  Receive Date: 20190417
  Receipt Date: 20190419
  Transmission Date: 20190711
  Serious: Yes (Death)
  Sender: FDA-Public Use
  Company Number: CN-BAXTER-2019BAX007570

PATIENT
  Age: 26 Year
  Sex: Female
  Weight: 63.5 kg

DRUGS (5)
  1. ENDOXAN [Suspect]
     Active Substance: CYCLOPHOSPHAMIDE
     Indication: ACUTE LYMPHOCYTIC LEUKAEMIA
     Dosage: DOSAGE FORM: INJECTION, TOTAL DOSE: 3830 MG
     Route: 041
     Dates: start: 20190221, end: 20190222
  2. BUSULFAN. [Suspect]
     Active Substance: BUSULFAN
     Route: 065
     Dates: start: 20190218, end: 20190218
  3. BUSULFAN. [Suspect]
     Active Substance: BUSULFAN
     Indication: ACUTE LYMPHOCYTIC LEUKAEMIA
     Route: 065
     Dates: start: 20190202, end: 20190202
  4. BUSULFAN. [Suspect]
     Active Substance: BUSULFAN
     Route: 065
     Dates: start: 20190220, end: 20190220
  5. FLUDARABINE [Suspect]
     Active Substance: FLUDARABINE PHOSPHATE
     Indication: ACUTE LYMPHOCYTIC LEUKAEMIA
     Route: 065
     Dates: start: 20190220

REACTIONS (4)
  - Acute pulmonary oedema [Fatal]
  - Left ventricular failure [Fatal]
  - Temperature intolerance [Unknown]
  - Pyrexia [Unknown]

NARRATIVE: CASE EVENT DATE: 20190222
